FAERS Safety Report 9472394 (Version 1)
Quarter: 2013Q3

REPORT INFORMATION
  Report Type: Spontaneous
  Country: US (occurrence: US)
  Receive Date: 20130823
  Receipt Date: 20130823
  Transmission Date: 20140515
  Serious: Yes (Hospitalization)
  Sender: FDA-Public Use
  Company Number: US-PFIZER INC-2013241826

PATIENT
  Age: 84 Year
  Sex: Female

DRUGS (1)
  1. XALKORI [Suspect]
     Dosage: 200 MG, 2X/DAY
     Dates: start: 20121215

REACTIONS (1)
  - Hernia [Recovering/Resolving]
